FAERS Safety Report 6334128-6 (Version None)
Quarter: 2009Q3

REPORT INFORMATION
  Report Type: 
  Country: None (occurrence: None)
  Receive Date: 20090829
  Receipt Date: 20090722
  Transmission Date: 20100115
  Serious: No
  Sender: FDA-Public Use
  Company Number: US-ABBOTT-09P-163-0587527-00

PATIENT
  Sex: Female
  Weight: 101.7 kg

DRUGS (6)
  1. SIMCOR [Suspect]
     Indication: BLOOD TRIGLYCERIDES INCREASED
     Dates: start: 20090701
  2. LISINOPRIL [Concomitant]
     Indication: DRUG USE FOR UNKNOWN INDICATION
  3. GARLIC [Concomitant]
     Indication: DRUG USE FOR UNKNOWN INDICATION
  4. VIT E [Concomitant]
     Indication: DRUG USE FOR UNKNOWN INDICATION
  5. ANACIN [Concomitant]
     Indication: DRUG USE FOR UNKNOWN INDICATION
  6. NOVOLOG [Concomitant]
     Indication: DRUG USE FOR UNKNOWN INDICATION
     Dosage: 70/30
     Dates: start: 20090701

REACTIONS (1)
  - BLOOD GLUCOSE INCREASED [None]
